FAERS Safety Report 7198059-4 (Version None)
Quarter: 2010Q4

REPORT INFORMATION
  Report Type: 
  Country: None (occurrence: None)
  Receive Date: 20101227
  Receipt Date: 20101217
  Transmission Date: 20110411
  Serious: Yes (Hospitalization, Other)
  Sender: FDA-Public Use
  Company Number: US-ROCHE-749949

PATIENT
  Sex: Female

DRUGS (4)
  1. PEGINTERFERON ALFA-2A [Suspect]
     Indication: HEPATITIS C
     Route: 065
     Dates: start: 20100830
  2. RIBASPHERE [Suspect]
     Indication: HEPATITIS C
     Route: 065
     Dates: start: 20100830
  3. RIBASPHERE [Suspect]
     Route: 065
     Dates: start: 20101126
  4. PROCRIT [Suspect]
     Route: 065
     Dates: start: 20101126, end: 20101201

REACTIONS (2)
  - ANAEMIA [None]
  - THROMBOSIS [None]
